FAERS Safety Report 13366520 (Version 1)
Quarter: 2017Q1

REPORT INFORMATION
  Report Type: Spontaneous
  Country: CN (occurrence: CN)
  Receive Date: 20170323
  Receipt Date: 20170323
  Transmission Date: 20170429
  Serious: Yes (Other)
  Sender: FDA-Public Use
  Company Number: CN-IMPAX LABORATORIES, INC-2017-IPXL-00720

PATIENT
  Age: 32 Year
  Sex: Male

DRUGS (1)
  1. ALBENZA [Suspect]
     Active Substance: ALBENDAZOLE
     Indication: ANAL PRURITUS
     Dosage: 2 TABLET, SINGLE
     Route: 048
     Dates: start: 201703, end: 201703

REACTIONS (8)
  - Drug ineffective [Unknown]
  - Nausea [Unknown]
  - Haematochezia [Unknown]
  - Diarrhoea [Unknown]
  - Pyrexia [Unknown]
  - Blood pressure increased [Unknown]
  - Headache [Unknown]
  - Chills [Unknown]

NARRATIVE: CASE EVENT DATE: 201703
